FAERS Safety Report 19473409 (Version 2)
Quarter: 2022Q3

REPORT INFORMATION
  Report Type: Spontaneous
  Country: US (occurrence: US)
  Receive Date: 20210629
  Receipt Date: 20220901
  Transmission Date: 20221026
  Serious: Yes (Death, Hospitalization, Other)
  Sender: FDA-Public Use
  Company Number: US-MYLANLABS-2021M1038556

PATIENT
  Age: 49 Year
  Sex: Male
  Weight: 108.39 kg

DRUGS (22)
  1. HYDROCHLOROTHIAZIDE\VALSARTAN [Suspect]
     Active Substance: HYDROCHLOROTHIAZIDE\VALSARTAN
     Indication: Hypertension
     Dosage: UNK
     Route: 065
     Dates: start: 20140412, end: 20160321
  2. HYDROCHLOROTHIAZIDE\VALSARTAN [Suspect]
     Active Substance: HYDROCHLOROTHIAZIDE\VALSARTAN
     Indication: Hypertension
     Dosage: UNK
     Route: 065
     Dates: start: 20160422, end: 20170518
  3. VALSARTAN [Suspect]
     Active Substance: VALSARTAN
     Indication: Hypertension
     Dosage: UNK
     Route: 065
     Dates: start: 20171016, end: 20180915
  4. METFORMIN [Concomitant]
     Active Substance: METFORMIN HYDROCHLORIDE
     Indication: Diabetes mellitus
     Dosage: 500 MILLIGRAM, QD
     Route: 065
     Dates: start: 2010, end: 20200208
  5. TRULICITY [Concomitant]
     Active Substance: DULAGLUTIDE
     Indication: Diabetes mellitus
     Dosage: 0.75 MILLIGRAM, QD
     Route: 065
     Dates: start: 2010, end: 20200208
  6. AMLODIPINE [Concomitant]
     Active Substance: AMLODIPINE BESYLATE
     Indication: Hypertension
     Dosage: 10 MILLIGRAM, QD
     Route: 065
     Dates: start: 2010, end: 20200208
  7. LANTUS [Concomitant]
     Active Substance: INSULIN GLARGINE
     Indication: Diabetes mellitus
     Dosage: 100 INTERNATIONAL UNIT, QD
     Route: 065
     Dates: start: 2010, end: 20200208
  8. LANTUS [Concomitant]
     Active Substance: INSULIN GLARGINE
     Dosage: 25 INTERNATIONAL UNIT, AM INJECT 25 UNITS INTO THE SKIN EVERY MORNING
     Route: 065
  9. GLIMEPIRIDE [Concomitant]
     Active Substance: GLIMEPIRIDE
     Indication: Hypertension
     Dosage: 4 MILLIGRAM, QD
     Route: 065
     Dates: start: 2010, end: 20200208
  10. VITAMIN D [Concomitant]
     Active Substance: VITAMIN D NOS
     Indication: Vitamin D decreased
     Dosage: 1000 INTERNATIONAL UNIT, QD
     Route: 065
     Dates: end: 20200208
  11. VITAMIN D [Concomitant]
     Active Substance: VITAMIN D NOS
     Dosage: 5000 INTERNATIONAL UNIT, QD
     Route: 065
  12. DULCOLAX NOS [Concomitant]
     Active Substance: BISACODYL OR DOCUSATE SODIUM
     Dosage: TAKE 1 TABLET BY MOUTH AS INSTRUCTED. TAKE 4 TABLETS AT 6 PM
     Route: 065
  13. NEO-FRADIN [Concomitant]
     Active Substance: NEOMYCIN SULFATE
     Dosage: TAKE 2 TABLETS BY MOUTH AS INSTRUCTED, 2 TABLETS AT NOON 1 PM AND 8 PM
     Route: 065
  14. GLUCOPHAGE XR [Concomitant]
     Active Substance: METFORMIN HYDROCHLORIDE
     Dosage: 500 MILLIGRAM, QD (TAKE 3 TABLETS BY MOUTH DAILY. CAN SPLIT DOSING)
     Route: 048
  15. BIAXIN [Concomitant]
     Active Substance: CLARITHROMYCIN
     Dosage: 500 MILLIGRAM, BID TAKE 1 TABLET BY MOUTH 2 TIMES DAILY
     Route: 048
  16. PROTONIX [Concomitant]
     Active Substance: PANTOPRAZOLE SODIUM
     Dosage: 40 MILLIGRAM, BID (TAKE 1 TABLET BY MOUTH 2 TIMES DAILY)
     Route: 048
  17. ANDROGEL [Concomitant]
     Active Substance: TESTOSTERONE
     Dosage: PLACE 1 APPLICATION ONTO THE SKIN DAILY. 3 PUMPS DAILY
     Route: 065
  18. NORVASC [Concomitant]
     Active Substance: AMLODIPINE BESYLATE
     Dosage: 10 MILLIGRAM, QD TAKE 1 TABLET BY MOUTH EVERY EVENING
     Route: 048
  19. HYGROTON [Concomitant]
     Active Substance: CHLORTHALIDONE
     Dosage: 25 MILLIGRAM, QD TAKE 1 TABLET BY MOUTH DAILY
     Route: 048
  20. DIOVAN [Concomitant]
     Active Substance: VALSARTAN
     Dosage: 320 MILLIGRAM, QD TAKE 1 TABLET BY MOUTH EVERY EVENING
     Route: 048
  21. ASPIRIN [Concomitant]
     Active Substance: ASPIRIN
     Dosage: 81 MILLIGRAM, QD TAKE 1 TABLET BY MOUTH DAILY
     Route: 048
  22. FLONASE [Concomitant]
     Active Substance: FLUTICASONE PROPIONATE
     Dosage: UNK, QD (2 SPRAYS BY NASAL ROUTE DAILY)
     Route: 045

REACTIONS (2)
  - Colon cancer stage IV [Fatal]
  - Metastatic neoplasm [Fatal]

NARRATIVE: CASE EVENT DATE: 20180625
